FAERS Safety Report 24864880 (Version 1)
Quarter: 2025Q1

REPORT INFORMATION
  Report Type: Report from Study
  Country: US (occurrence: US)
  Receive Date: 20250121
  Receipt Date: 20250121
  Transmission Date: 20250409
  Serious: Yes (Other)
  Sender: ABBVIE
  Company Number: US-ABBVIE-6091284

PATIENT
  Sex: Male

DRUGS (1)
  1. IMBRUVICA [Suspect]
     Active Substance: IBRUTINIB
     Indication: Chronic lymphocytic leukaemia
     Route: 048
     Dates: start: 20171201, end: 20250110

REACTIONS (5)
  - Dental operation [Unknown]
  - SARS-CoV-2 test positive [Unknown]
  - Severe acute respiratory syndrome [Unknown]
  - Intentional dose omission [Unknown]
  - Pyrexia [Recovering/Resolving]
